FAERS Safety Report 8252981-6 (Version None)
Quarter: 2012Q2

REPORT INFORMATION
  Report Type: 
  Country: None (occurrence: None)
  Receive Date: 20120402
  Receipt Date: 20120323
  Transmission Date: 20120825
  Serious: Yes (Life-Threatening, Hospitalization, Disabling, Other)
  Sender: FDA-Public Use
  Company Number: US-MERCK-1110USA03358

PATIENT
  Age: 57 Year
  Sex: Female
  Weight: 73 kg

DRUGS (11)
  1. DOXYCYCLINE [Concomitant]
     Indication: ABSCESS
     Route: 065
     Dates: start: 20110218
  2. AMLODIPINE [Concomitant]
     Route: 048
  3. CELEBREX [Concomitant]
     Route: 048
  4. EVENING PRIMROSE OIL [Concomitant]
     Route: 048
  5. GABAPENTIN [Concomitant]
     Route: 048
  6. FOSAMAX [Suspect]
     Indication: OSTEOPOROSIS
     Route: 048
     Dates: end: 20110222
  7. ACETAMINOPHEN AND HYDROCODONE BITARTRATE [Concomitant]
     Indication: PAIN
     Route: 048
  8. BLACK COHOSH [Concomitant]
     Route: 048
  9. HYDROCHLOROTHIAZIDE AND LOSARTAN POTASSIUM [Concomitant]
     Route: 048
  10. SERTRALINE HYDROCHLORIDE [Concomitant]
     Route: 048
  11. ASPIRIN [Concomitant]
     Route: 048

REACTIONS (8)
  - SKIN LESION [None]
  - COUGH [None]
  - BLOOD POTASSIUM DECREASED [None]
  - RASH [None]
  - OBSTRUCTIVE AIRWAYS DISORDER [None]
  - BLOOD CALCIUM DECREASED [None]
  - INCREASED BRONCHIAL SECRETION [None]
  - PNEUMONIA ASPIRATION [None]
